FAERS Safety Report 17201552 (Version 1)
Quarter: 2020Q1

REPORT INFORMATION
  Report Type: Spontaneous
  Country: CA (occurrence: CA)
  Receive Date: 20191221
  Receipt Date: 20191221
  Transmission Date: 20200409
  Serious: No
  Sender: FDA-Public Use
  Company Number: None

PATIENT
  Age: 31 Year
  Sex: Female
  Weight: 65.25 kg

DRUGS (6)
  1. VITAMIN E [Concomitant]
     Active Substance: .ALPHA.-TOCOPHEROL
  2. PRIM ROSE OIL [Concomitant]
  3. U DREAM HERBAL SUPPLEMENT [Suspect]
     Active Substance: HERBALS
     Indication: SLEEP DISORDER
     Dosage: ?          QUANTITY:1 CAPSULE(S);?
     Route: 048
  4. VITAMIN A [Concomitant]
     Active Substance: VITAMIN A
  5. FLAXSEED [Concomitant]
     Active Substance: FLAX SEED
  6. DIM [Concomitant]

REACTIONS (3)
  - Pain [None]
  - Asthenia [None]
  - Malaise [None]

NARRATIVE: CASE EVENT DATE: 20190701
